FAERS Safety Report 6332677-8 (Version None)
Quarter: 2009Q3

REPORT INFORMATION
  Report Type: 
  Country: None (occurrence: None)
  Receive Date: 20090828
  Receipt Date: 20090820
  Transmission Date: 20100115
  Serious: Yes (Other)
  Sender: FDA-Public Use
  Company Number: GB-JNJFOC-20090807247

PATIENT
  Sex: Female
  Weight: 76 kg

DRUGS (11)
  1. REMICADE [Suspect]
     Route: 042
  2. REMICADE [Suspect]
     Indication: RHEUMATOID ARTHRITIS
     Route: 042
  3. DICLOFENAC [Concomitant]
  4. CODEINE [Concomitant]
  5. METHOTREXATE [Concomitant]
  6. PREDNISOLONE [Concomitant]
  7. ETIDRONATE DISODIUM [Concomitant]
  8. FEXOFENADINE [Concomitant]
  9. FOLIC ACID [Concomitant]
  10. LANSOPRAZOLE [Concomitant]
  11. PARACETAMOL [Concomitant]

REACTIONS (2)
  - DEEP VEIN THROMBOSIS [None]
  - INTERVERTEBRAL DISC PROTRUSION [None]
